FAERS Safety Report 8343485-0 (Version None)
Quarter: 2012Q2

REPORT INFORMATION
  Report Type: 
  Country: None (occurrence: None)
  Receive Date: 20120508
  Receipt Date: 20120504
  Transmission Date: 20120825
  Serious: Yes (Death)
  Sender: FDA-Public Use
  Company Number: PHEH2012US009599

PATIENT
  Sex: Female

DRUGS (16)
  1. GLEEVEC [Suspect]
     Indication: BENIGN SOFT TISSUE NEOPLASM
     Dosage: 100 MG, BID
     Route: 048
     Dates: start: 20120228
  2. LEVOTHYROXINE SODIUM [Concomitant]
  3. ALPRAZOLAM [Concomitant]
  4. VICODIN [Concomitant]
  5. ISOSORBIDE DINITRATE [Concomitant]
  6. CALCITRIOL [Concomitant]
  7. PROMETHAZINE [Concomitant]
  8. METOPROLOL TARTRATE [Concomitant]
  9. FUROSEMIDE [Concomitant]
  10. CARBIDOPA [Concomitant]
  11. PAROXETINE [Concomitant]
  12. OMEPRAZOLE [Concomitant]
  13. WARFARIN SODIUM [Concomitant]
  14. TRAZODONE HCL [Concomitant]
  15. LEVODOPA [Concomitant]
  16. TEMAZEPAM [Concomitant]

REACTIONS (1)
  - DEATH [None]
